FAERS Safety Report 19210862 (Version 1)
Quarter: 2021Q2

REPORT INFORMATION
  Report Type: Spontaneous
  Country: GB (occurrence: GB)
  Receive Date: 20210504
  Receipt Date: 20210504
  Transmission Date: 20210717
  Serious: Yes (Other)
  Sender: FDA-Public Use
  Company Number: GB-TEVA-2021-GB-1906464

PATIENT
  Age: 43 Year
  Sex: Female
  Weight: 53 kg

DRUGS (8)
  1. SEA KELP [Concomitant]
     Indication: ILL-DEFINED DISORDER
  2. SELENIUM [Concomitant]
     Active Substance: SELENIUM
     Indication: ILL-DEFINED DISORDER
  3. VITAMIN D (UNSPECIFIED) [Concomitant]
     Active Substance: VITAMIN D NOS
     Indication: ILL-DEFINED DISORDER
  4. ZINC. [Concomitant]
     Active Substance: ZINC
     Indication: ILL-DEFINED DISORDER
  5. COPAXONE [Suspect]
     Active Substance: GLATIRAMER ACETATE
     Indication: ILL-DEFINED DISORDER
     Dosage: 40MG/ML
     Route: 051
     Dates: start: 20201019
  6. COPAXONE [Suspect]
     Active Substance: GLATIRAMER ACETATE
     Indication: MULTIPLE SCLEROSIS
  7. SERTRALINE [Concomitant]
     Active Substance: SERTRALINE HYDROCHLORIDE
     Indication: ILL-DEFINED DISORDER
  8. BACLOFEN. [Concomitant]
     Active Substance: BACLOFEN
     Indication: ILL-DEFINED DISORDER

REACTIONS (11)
  - Chest discomfort [Recovered/Resolved]
  - Pruritus [Recovered/Resolved]
  - Dizziness [Recovered/Resolved]
  - Dyspnoea [Recovered/Resolved]
  - Injection site discomfort [Recovering/Resolving]
  - Palpitations [Recovered/Resolved]
  - Flushing [Recovered/Resolved]
  - Throat tightness [Recovered/Resolved]
  - Injection site haemorrhage [Recovered/Resolved]
  - Injection site mass [Recovering/Resolving]
  - Urticaria [Recovered/Resolved]

NARRATIVE: CASE EVENT DATE: 20210423
